FAERS Safety Report 5265686-0 (Version None)
Quarter: 2007Q1

REPORT INFORMATION
  Report Type: 
  Country: None (occurrence: None)
  Receive Date: 20061213
  Receipt Date: 20040312
  Transmission Date: 20070707
  Serious: Yes (Other)
  Sender: FDA-Public Use
  Company Number: 2004UW04738

PATIENT
  Sex: Female

DRUGS (2)
  1. IRESSA [Suspect]
     Dates: start: 20031001
  2. NITROGLYCERIN [Concomitant]

REACTIONS (2)
  - ARTERIOSPASM CORONARY [None]
  - DRUG INTERACTION [None]
